FAERS Safety Report 11688805 (Version 2)
Quarter: 2015Q4

REPORT INFORMATION
  Report Type: Spontaneous
  Country: FR (occurrence: FR)
  Receive Date: 20151102
  Receipt Date: 20151222
  Transmission Date: 20160304
  Serious: Yes (Hospitalization)
  Sender: FDA-Public Use
  Company Number: FR-AMGEN-FRASP2015114285

PATIENT
  Age: 68 Year
  Sex: Female
  Weight: 54 kg

DRUGS (16)
  1. NEULASTA [Suspect]
     Active Substance: PEGFILGRASTIM
     Indication: PRODUCT USED FOR UNKNOWN INDICATION
     Dosage: UNK
     Route: 065
     Dates: start: 201509, end: 20150930
  2. FORLAX [Concomitant]
     Active Substance: POLYETHYLENE GLYCOL 4000
     Dosage: 10 MG, ONE IN THE MORNING IF NEEDED
     Route: 048
     Dates: start: 20150820, end: 20151001
  3. FUROSEMIDE. [Concomitant]
     Active Substance: FUROSEMIDE
     Dosage: 20 MG, 1 DAY, 2-0-0
     Route: 042
     Dates: start: 20150920, end: 20150929
  4. SMECTA [Concomitant]
     Active Substance: MONTMORILLONITE
     Indication: DIARRHOEA
     Dosage: UNK, 1-1-IN CASE OF DIARRHEA
     Route: 048
     Dates: start: 20150924, end: 20150928
  5. DIFFU-K [Concomitant]
     Active Substance: POTASSIUM CHLORIDE
     Dosage: 600 MG, 1-1-1
     Route: 048
     Dates: start: 20150923, end: 20150929
  6. EPREX [Concomitant]
     Active Substance: ERYTHROPOIETIN
     Dosage: 40000 IU/ML, UNK
     Route: 058
     Dates: start: 201509, end: 20150922
  7. BI-PROFENID [Concomitant]
     Active Substance: KETOPROFEN
     Dosage: 100 MG, 1-0-1
     Route: 048
     Dates: start: 20150920, end: 20150922
  8. PARACETAMOL [Concomitant]
     Active Substance: ACETAMINOPHEN
     Indication: PAIN
     Dosage: 1 G, 1-1-1 IN CASE OF PAIN
     Route: 048
     Dates: start: 20150920, end: 20151001
  9. COLCHICINE. [Concomitant]
     Active Substance: COLCHICINE
     Dosage: 1 MG, 1-0-1
     Route: 048
     Dates: start: 20150921, end: 20150926
  10. MOPRAL                             /00661201/ [Concomitant]
     Active Substance: OMEPRAZOLE SODIUM
     Dosage: 20 MG, 0-0-1
     Route: 048
     Dates: start: 20150920, end: 20151001
  11. SPASFON                            /00765801/ [Concomitant]
     Active Substance: PHLOROGLUCINOL\1,3,5-TRIMETHOXYBENZENE
     Indication: ABDOMINAL RIGIDITY
     Dosage: 80 MG, 2-2-2 IN CASE OF SPASMODIC PAIN
     Route: 048
     Dates: start: 20150924, end: 20150928
  12. LEXOMIL [Concomitant]
     Active Substance: BROMAZEPAM
     Indication: ANXIETY
     Dosage: 6 MG, 1/4-0-1/4
     Route: 048
     Dates: start: 20150920, end: 20151001
  13. PRIMPERAN [Concomitant]
     Active Substance: METOCLOPRAMIDE HYDROCHLORIDE
     Indication: VOMITING
     Dosage: 10 MG, 1-1-1 IN CASE OF VOMITING
     Route: 048
     Dates: start: 20150921, end: 20150922
  14. LOVENOX [Concomitant]
     Active Substance: ENOXAPARIN SODIUM
     Dosage: 4000 IU, 3 DAYS
     Route: 058
     Dates: start: 20150920, end: 20150922
  15. SEROPLEX [Concomitant]
     Active Substance: ESCITALOPRAM OXALATE
     Dosage: 5 MG, 1-0-0
     Route: 048
     Dates: start: 20150920, end: 20151001
  16. STILNOX [Concomitant]
     Active Substance: ZOLPIDEM TARTRATE
     Indication: INSOMNIA
     Dosage: 10 MG, 0-0-0-1
     Route: 048
     Dates: start: 20150920, end: 20150920

REACTIONS (2)
  - Pericarditis [Recovered/Resolved]
  - Capillary leak syndrome [Recovered/Resolved]

NARRATIVE: CASE EVENT DATE: 20150919
